FAERS Safety Report 23967474 (Version 1)
Quarter: 2024Q2

REPORT INFORMATION
  Report Type: Spontaneous
  Country: US (occurrence: None)
  Receive Date: 20240611
  Receipt Date: 20240611
  Transmission Date: 20240716
  Serious: Yes (Hospitalization)
  Sender: FDA-Public Use
  Company Number: None

PATIENT
  Age: 58 Year
  Sex: Female
  Weight: 90.45 kg

DRUGS (1)
  1. WEGOVY [Suspect]
     Active Substance: SEMAGLUTIDE
     Indication: Obesity
     Dosage: FREQUENCY : WEEKLY;?
     Route: 058
     Dates: start: 20240410, end: 20240611

REACTIONS (7)
  - Nausea [None]
  - Constipation [None]
  - Product use issue [None]
  - Abdominal pain [None]
  - Colitis [None]
  - Peritonitis [None]
  - Clostridium test positive [None]

NARRATIVE: CASE EVENT DATE: 20240507
